FAERS Safety Report 9117040 (Version 3)
Quarter: 2013Q2

REPORT INFORMATION
  Report Type: Spontaneous
  Country: US (occurrence: US)
  Receive Date: 20130225
  Receipt Date: 20130429
  Transmission Date: 20140414
  Serious: Yes (Other)
  Sender: FDA-Public Use
  Company Number: US-PFIZER INC-2013062956

PATIENT
  Age: 73 Year
  Sex: Female
  Weight: 86.17 kg

DRUGS (6)
  1. CELEBREX [Suspect]
     Indication: ARTHRITIS
     Dosage: 200 MG, 2X/DAY
     Dates: start: 2005, end: 201304
  2. KLONOPIN [Suspect]
     Dosage: 1 MG, 3X/DAY
  3. HYDROCODONE [Concomitant]
     Dosage: UNK, AS NEEDED
  4. SIMVASTATIN [Concomitant]
     Dosage: 20MG DAILY
  5. ATORVASTATIN [Concomitant]
     Dosage: 1X/DAY
  6. HYDROCHLOROTHIAZIDE WITH TRIAMTERENE [Concomitant]
     Dosage: 75/50MG, 1X/DAY

REACTIONS (12)
  - Gait disturbance [Unknown]
  - Speech disorder [Unknown]
  - Dysphagia [Unknown]
  - Dizziness [Unknown]
  - Asthenia [Unknown]
  - Head discomfort [Unknown]
  - Dyspnoea [Unknown]
  - Swelling face [Unknown]
  - Oedema peripheral [Unknown]
  - Muscular weakness [Unknown]
  - Pain [Unknown]
  - Nausea [Unknown]
